FAERS Safety Report 9516934 (Version 1)
Quarter: 2013Q3

REPORT INFORMATION
  Report Type: Spontaneous
  Country: US (occurrence: US)
  Receive Date: 20130911
  Receipt Date: 20130911
  Transmission Date: 20140515
  Serious: No
  Sender: FDA-Public Use
  Company Number: US-PFIZER INC-2013260566

PATIENT
  Age: 55 Year
  Sex: Female
  Weight: 34.01 kg

DRUGS (1)
  1. CELEBREX [Suspect]
     Indication: FOOT FRACTURE
     Dosage: 200 MG, 1X/DAY
     Route: 048
     Dates: start: 20130802, end: 2013

REACTIONS (7)
  - Off label use [Unknown]
  - Hypersensitivity [Unknown]
  - Malaise [Unknown]
  - Rash [Unknown]
  - Skin discolouration [Unknown]
  - Weight decreased [Unknown]
  - Diarrhoea [Unknown]
